FAERS Safety Report 23119209 (Version 1)
Quarter: 2023Q4

REPORT INFORMATION
  Report Type: Spontaneous
  Country: US (occurrence: US)
  Receive Date: 20231028
  Receipt Date: 20231028
  Transmission Date: 20240109
  Serious: No
  Sender: FDA-Public Use
  Company Number: US-SANDOZ-SDZ2023US046882

PATIENT
  Sex: Female

DRUGS (1)
  1. GLATOPA [Suspect]
     Active Substance: GLATIRAMER ACETATE
     Indication: Product used for unknown indication
     Dosage: 40 MG/ML,3X A WEEK
     Route: 065
     Dates: end: 20231023

REACTIONS (4)
  - Injection site reaction [Unknown]
  - Blood pressure increased [Unknown]
  - Malaise [Unknown]
  - Tremor [Unknown]
